FAERS Safety Report 23759465 (Version 1)
Quarter: 2024Q2

REPORT INFORMATION
  Report Type: Spontaneous
  Country: US (occurrence: None)
  Receive Date: 20240418
  Receipt Date: 20240418
  Transmission Date: 20240716
  Serious: No
  Sender: FDA-Public Use
  Company Number: US-ROCHE-3444885

PATIENT
  Age: 78 Year
  Sex: Male

DRUGS (5)
  1. ESBRIET [Suspect]
     Active Substance: PIRFENIDONE
     Indication: Product used for unknown indication
     Route: 065
  2. TYVASO [Suspect]
     Active Substance: TREPROSTINIL
     Indication: Pulmonary arterial hypertension
     Route: 065
     Dates: start: 2023
  3. TYVASO [Suspect]
     Active Substance: TREPROSTINIL
     Route: 065
  4. TYVASO [Suspect]
     Active Substance: TREPROSTINIL
     Route: 065
  5. TYVASO [Suspect]
     Active Substance: TREPROSTINIL
     Route: 065
     Dates: start: 202309

REACTIONS (5)
  - Cough [Not Recovered/Not Resolved]
  - Headache [Unknown]
  - Abdominal pain upper [Unknown]
  - Weight decreased [Unknown]
  - Decreased appetite [Unknown]
